FAERS Safety Report 8539497-4 (Version None)
Quarter: 2012Q3

REPORT INFORMATION
  Report Type: 
  Country: None (occurrence: None)
  Receive Date: 20120726
  Receipt Date: 20120717
  Transmission Date: 20120928
  Serious: Yes (Hospitalization)
  Sender: FDA-Public Use
  Company Number: DE-US-EMD SERONO, INC.-7148997

PATIENT
  Sex: Female
  Weight: 40 kg

DRUGS (2)
  1. SAIZEN [Suspect]
     Indication: TURNER'S SYNDROME
  2. SAIZEN [Suspect]
     Indication: DWARFISM
     Route: 058
     Dates: start: 20120411

REACTIONS (2)
  - BILE DUCT STENOSIS [None]
  - HYDROCHOLECYSTIS [None]
